FAERS Safety Report 16886299 (Version 1)
Quarter: 2019Q4

REPORT INFORMATION
  Report Type: Spontaneous
  Country: US (occurrence: US)
  Receive Date: 20191004
  Receipt Date: 20191004
  Transmission Date: 20200122
  Serious: Yes (Hospitalization)
  Sender: FDA-Public Use
  Company Number: None

PATIENT
  Age: 72 Year
  Sex: Male
  Weight: 88.79 kg

DRUGS (11)
  1. FENOFIBRATE. [Concomitant]
     Active Substance: FENOFIBRATE
  2. EMPAGLIFLOZIN [Suspect]
     Active Substance: EMPAGLIFLOZIN
     Indication: TYPE 2 DIABETES MELLITUS
     Route: 048
     Dates: start: 20190826, end: 20190919
  3. METOPROLOL SUCCINATE 200MG DAILY [Concomitant]
  4. ATORVASTATIN 20MG DAILY [Concomitant]
  5. GLIPIZIDE 10MGBID [Concomitant]
  6. METFORMIN 1000MG BID [Concomitant]
  7. SERTRALINE  150MG DAILY [Concomitant]
  8. EMPAGLIFLOZIN [Suspect]
     Active Substance: EMPAGLIFLOZIN
     Indication: CORONARY ARTERY DISEASE
     Route: 048
     Dates: start: 20190826, end: 20190919
  9. PRAZOSIN 5MG HS [Concomitant]
  10. HCTZ/LOSARTAN 12.5/50MG BID [Concomitant]
  11. ALLOPURINOL 100MG DAILY [Concomitant]

REACTIONS (4)
  - Rib fracture [None]
  - Fall [None]
  - Dizziness [None]
  - Syncope [None]

NARRATIVE: CASE EVENT DATE: 20190918
